FAERS Safety Report 20546652 (Version 1)
Quarter: 2022Q1

REPORT INFORMATION
  Report Type: Spontaneous
  Country: US (occurrence: None)
  Receive Date: 20220303
  Receipt Date: 20220303
  Transmission Date: 20220423
  Serious: No
  Sender: FDA-Public Use
  Company Number: None

PATIENT
  Age: 61 Year
  Sex: Female

DRUGS (1)
  1. VUMERITY [Suspect]
     Active Substance: DIROXIMEL FUMARATE
     Indication: Multiple sclerosis
     Dosage: FREQUENCY : TWICE A DAY;?
     Route: 048
     Dates: start: 20210302

REACTIONS (6)
  - Multiple sclerosis relapse [None]
  - Multiple sclerosis [None]
  - Dyspraxia [None]
  - Muscle twitching [None]
  - Cognitive disorder [None]
  - Dyschromatopsia [None]

NARRATIVE: CASE EVENT DATE: 20220103
